FAERS Safety Report 11363834 (Version 1)
Quarter: 2015Q3

REPORT INFORMATION
  Report Type: Spontaneous
  Country: CA (occurrence: CA)
  Receive Date: 20150811
  Receipt Date: 20150811
  Transmission Date: 20151125
  Serious: Yes (Other)
  Sender: FDA-Public Use
  Company Number: CA-TEVA-585138ACC

PATIENT
  Age: 77 Year
  Sex: Male
  Weight: 76 kg

DRUGS (1)
  1. TAMSULOSIN CR [Suspect]
     Active Substance: TAMSULOSIN
     Indication: BENIGN PROSTATIC HYPERPLASIA
     Dosage: .8 MILLIGRAM DAILY;
     Route: 048

REACTIONS (4)
  - Urinary retention [Unknown]
  - Drug ineffective [Unknown]
  - Product substitution issue [Unknown]
  - Dysuria [Unknown]
